FAERS Safety Report 4767877-1 (Version None)
Quarter: 2005Q3

REPORT INFORMATION
  Report Type: 
  Country: None (occurrence: None)
  Receive Date: 20050912
  Receipt Date: 20050902
  Transmission Date: 20060218
  Serious: Yes (Hospitalization, Other)
  Sender: FDA-Public Use
  Company Number: KII-2005-0018448

PATIENT
  Age: 55 Year
  Sex: Male

DRUGS (4)
  1. HYDROMORPHONE HCL [Suspect]
     Indication: PAIN
     Dosage: ORAL
     Route: 048
  2. FENTANYL [Suspect]
     Indication: PAIN
     Dosage: 100 MCG, SEE TEXT, TRANSDERMAL
     Route: 062
  3. CARISOPRODOL [Suspect]
     Indication: PAIN
     Dosage: ORAL
     Route: 048
  4. BENZODIAZEPINE DERIVATIVES [Suspect]
     Indication: PAIN
     Dosage: ORAL
     Route: 048

REACTIONS (10)
  - BODY TEMPERATURE INCREASED [None]
  - COMA [None]
  - HAEMATOCRIT DECREASED [None]
  - INTENTIONAL MISUSE [None]
  - LETHARGY [None]
  - MULTIPLE DRUG OVERDOSE [None]
  - PNEUMONIA ASPIRATION [None]
  - RESPIRATORY DEPRESSION [None]
  - RESPIRATORY RATE INCREASED [None]
  - SUICIDAL IDEATION [None]
